FAERS Safety Report 4413810-1 (Version None)
Quarter: 2004Q3

REPORT INFORMATION
  Report Type: 
  Country: None (occurrence: None)
  Receive Date: 20040728
  Receipt Date: 20040709
  Transmission Date: 20050211
  Serious: Yes (Other)
  Sender: FDA-Public Use
  Company Number: US_0403101908

PATIENT
  Age: 78 Year
  Sex: Female

DRUGS (3)
  1. EVISTA [Suspect]
  2. ACTONEL [Concomitant]
  3. MIACALCIN [Concomitant]

REACTIONS (1)
  - SPINAL COMPRESSION FRACTURE [None]
